FAERS Safety Report 25595857 (Version 1)
Quarter: 2025Q3

REPORT INFORMATION
  Report Type: Spontaneous
  Country: US (occurrence: US)
  Receive Date: 20250723
  Receipt Date: 20250723
  Transmission Date: 20251021
  Serious: Yes (Hospitalization, Other)
  Sender: ROCHE
  Company Number: US-ROCHE-10000345290

PATIENT
  Age: 44 Year
  Sex: Female

DRUGS (10)
  1. OCRELIZUMAB [Suspect]
     Active Substance: OCRELIZUMAB
     Indication: Relapsing-remitting multiple sclerosis
     Route: 065
     Dates: start: 201806
  2. LEVOTHYROXINE [Concomitant]
     Active Substance: LEVOTHYROXINE
  3. ESTRADIOL [Concomitant]
     Active Substance: ESTRADIOL
  4. MEDROXYPROGESTERONE [Concomitant]
     Active Substance: MEDROXYPROGESTERONE
  5. ZOLPIDEM [Concomitant]
     Active Substance: ZOLPIDEM TARTRATE
  6. ALBUTEROL [Concomitant]
     Active Substance: ALBUTEROL
  7. METOPROLOL [Concomitant]
     Active Substance: METOPROLOL
  8. VANCOMYCIN [Concomitant]
     Active Substance: VANCOMYCIN
  9. CEFEPIME [Concomitant]
     Active Substance: CEFEPIME HYDROCHLORIDE
  10. SULFAMETHOXAZOLE AND TRIMETHOPRIM [Concomitant]
     Active Substance: SULFAMETHOXAZOLE\TRIMETHOPRIM

REACTIONS (3)
  - COVID-19 [Recovering/Resolving]
  - Organising pneumonia [Recovering/Resolving]
  - Pneumonia [Recovering/Resolving]

NARRATIVE: CASE EVENT DATE: 20220301
